FAERS Safety Report 21348400 (Version 2)
Quarter: 2022Q3

REPORT INFORMATION
  Report Type: Report from Study
  Country: US (occurrence: None)
  Receive Date: 20220919
  Receipt Date: 20220923
  Transmission Date: 20221027
  Serious: Yes (Hospitalization)
  Sender: FDA-Public Use
  Company Number: US-Merck Healthcare KGaA-9350986

PATIENT
  Sex: Female

DRUGS (1)
  1. REBIF [Suspect]
     Active Substance: INTERFERON BETA-1A
     Indication: Multiple sclerosis
     Route: 058
     Dates: start: 20020731

REACTIONS (9)
  - Pancreatitis acute [Unknown]
  - Cholecystectomy [Unknown]
  - Rash [Unknown]
  - Pneumonia [Unknown]
  - Pulmonary embolism [Unknown]
  - Mobility decreased [Unknown]
  - Nasal obstruction [Unknown]
  - Anxiety disorder [Unknown]
  - Insomnia [Unknown]
